FAERS Safety Report 6291351-7 (Version None)
Quarter: 2009Q3

REPORT INFORMATION
  Report Type: 
  Country: None (occurrence: None)
  Receive Date: 20090730
  Receipt Date: 20090727
  Transmission Date: 20100115
  Serious: Yes (Death, Other)
  Sender: FDA-Public Use
  Company Number: US-BRISTOL-MYERS SQUIBB COMPANY-14705016

PATIENT
  Age: 66 Year
  Sex: Female

DRUGS (3)
  1. IXEMPRA KIT [Suspect]
     Indication: BREAST CANCER
     Dosage: 1 OR 2 CYCLE.18MAR-19MAR09,26APR-28APR,07APR-08APR09,16MAR-17MAR09(15MG)
     Route: 042
     Dates: start: 20090316
  2. HYDROCORTISONE [Suspect]
  3. FLORICAL [Suspect]

REACTIONS (6)
  - COGNITIVE DISORDER [None]
  - COMA [None]
  - DIZZINESS [None]
  - MALIGNANT NEOPLASM PROGRESSION [None]
  - ORTHOSTATIC HYPOTENSION [None]
  - TACHYCARDIA [None]
